FAERS Safety Report 4618221-1 (Version None)
Quarter: 2005Q1

REPORT INFORMATION
  Report Type: 
  Country: None (occurrence: None)
  Receive Date: 20050324
  Receipt Date: 20050223
  Transmission Date: 20050727
  Serious: Yes (Hospitalization)
  Sender: FDA-Public Use
  Company Number: JP-ABBOTT-05P-087-0291937-00

PATIENT
  Sex: Male

DRUGS (4)
  1. KLARICID [Suspect]
     Indication: UPPER RESPIRATORY TRACT INFLAMMATION
     Route: 048
     Dates: start: 20050216, end: 20050218
  2. AMBROXOL HYDROCHLORIDE [Concomitant]
     Indication: UPPER RESPIRATORY TRACT INFLAMMATION
     Route: 048
     Dates: start: 20050216, end: 20050218
  3. ISOSORBIDE DINITRATE [Concomitant]
     Indication: ANGINA PECTORIS
     Dosage: 1 TAPE X 1
     Route: 062
  4. UNKNOWN DRUG [Concomitant]
     Indication: UPPER RESPIRATORY TRACT INFLAMMATION
     Route: 048
     Dates: start: 20050216, end: 20050218

REACTIONS (5)
  - ABASIA [None]
  - DYSSTASIA [None]
  - FALL [None]
  - PYREXIA [None]
  - RHABDOMYOLYSIS [None]
